FAERS Safety Report 19675586 (Version 3)
Quarter: 2021Q3

REPORT INFORMATION
  Report Type: Report from Study
  Country: FR (occurrence: FR)
  Receive Date: 20210809
  Receipt Date: 20210828
  Transmission Date: 20211014
  Serious: Yes (Hospitalization)
  Sender: FDA-Public Use
  Company Number: FR-ROCHE-2877985

PATIENT
  Age: 80 Year
  Sex: Male

DRUGS (8)
  1. ATEZOLIZUMAB. [Suspect]
     Active Substance: ATEZOLIZUMAB
     Indication: NEOPLASM
     Route: 042
     Dates: start: 20210319, end: 20210702
  2. LEVOTHYROX [Concomitant]
     Active Substance: LEVOTHYROXINE
  3. RUCAPARIB [Suspect]
     Active Substance: RUCAPARIB
     Indication: NEOPLASM
     Route: 048
     Dates: start: 20210226, end: 20210701
  4. AMLOR [Concomitant]
     Active Substance: AMLODIPINE BESYLATE
  5. INIPOMP [Concomitant]
     Active Substance: PANTOPRAZOLE SODIUM
  6. BIPRETERAX [Concomitant]
     Active Substance: INDAPAMIDE\PERINDOPRIL
  7. TAHOR [Concomitant]
     Active Substance: ATORVASTATIN CALCIUM
  8. KARDEGIC [Concomitant]
     Active Substance: ASPIRIN DL-LYSINE

REACTIONS (1)
  - Febrile neutropenia [Recovered/Resolved]

NARRATIVE: CASE EVENT DATE: 20210716
